FAERS Safety Report 5732807-2 (Version None)
Quarter: 2008Q2

REPORT INFORMATION
  Report Type: 
  Country: None (occurrence: None)
  Receive Date: 20080507
  Receipt Date: 20080507
  Transmission Date: 20081010
  Serious: No
  Sender: FDA-Public Use
  Company Number: None

PATIENT
  Sex: Male
  Weight: 106.5953 kg

DRUGS (1)
  1. TYSABRI [Suspect]
     Dosage: 300MG/15ML VIAL
     Dates: start: 20070106

REACTIONS (2)
  - INFUSION RELATED REACTION [None]
  - SKIN DISCOLOURATION [None]
